FAERS Safety Report 7099963-8 (Version None)
Quarter: 2010Q4

REPORT INFORMATION
  Report Type: 
  Country: None (occurrence: None)
  Receive Date: 20101104
  Receipt Date: 20101026
  Transmission Date: 20110411
  Serious: Yes (Hospitalization)
  Sender: FDA-Public Use
  Company Number: USA/USA/10/0016305

PATIENT
  Age: 72 Year
  Sex: Male
  Weight: 81.6475 kg

DRUGS (10)
  1. LAMOTRIGINE [Suspect]
     Indication: DEPRESSION
     Dosage: 200 MG, 1 IN 1 D, PER ORAL
     Route: 048
     Dates: start: 20100917, end: 20101017
  2. LAMOTRIGINE [Suspect]
     Indication: PANIC ATTACK
     Dosage: 200 MG, 1 IN 1 D, PER ORAL
     Route: 048
     Dates: start: 20100917, end: 20101017
  3. LAMICTAL [Suspect]
     Indication: PANIC ATTACK
     Dosage: VARIABLE DOSE, ORAL
     Route: 048
     Dates: start: 20100620
  4. ASPIRIN [Concomitant]
  5. JOINT SUPPLEMENT (JOINT CARE GLUCOSAMINE CHONDRITIN + MSM) [Concomitant]
  6. SIMVASTATIN [Concomitant]
  7. LORAZEPAM [Concomitant]
  8. ISOSORBIDE MONONITRATE [Concomitant]
  9. METOPROLOL SUCCINATE [Concomitant]
  10. LISINOPRIL [Concomitant]

REACTIONS (10)
  - ALOPECIA [None]
  - ASTHENIA [None]
  - FALL [None]
  - FATIGUE [None]
  - GAIT DISTURBANCE [None]
  - HEADACHE [None]
  - HYPOAESTHESIA [None]
  - OFF LABEL USE [None]
  - TREMOR [None]
  - VISION BLURRED [None]
